FAERS Safety Report 9916411 (Version 1)
Quarter: 2014Q1

REPORT INFORMATION
  Report Type: Spontaneous
  Country: JP (occurrence: JP)
  Receive Date: 20140221
  Receipt Date: 20140221
  Transmission Date: 20141002
  Serious: Yes (Other)
  Sender: FDA-Public Use
  Company Number: PHHY2014JP021441

PATIENT
  Sex: Male

DRUGS (3)
  1. EXFORGE [Suspect]
     Dosage: 1 DF, DAILY
     Route: 048
     Dates: start: 2011
  2. BLOPRESS [Concomitant]
     Dosage: 8 MG, UNK
     Route: 048
     Dates: start: 20030517, end: 2011
  3. CONIEL [Concomitant]
     Dosage: 4 MG, UNK
     Route: 048
     Dates: start: 20030517, end: 2011

REACTIONS (2)
  - Myocardial infarction [Unknown]
  - Atrioventricular block [Unknown]
